FAERS Safety Report 6953533-8 (Version None)
Quarter: 2010Q3

REPORT INFORMATION
  Report Type: 
  Country: None (occurrence: None)
  Receive Date: 20100829
  Receipt Date: 20100618
  Transmission Date: 20110219
  Serious: Yes (Other)
  Sender: FDA-Public Use
  Company Number: US-ABBOTT-10P-163-0652648-00

PATIENT
  Sex: Female

DRUGS (14)
  1. NIASPAN [Suspect]
     Indication: BLOOD CHOLESTEROL INCREASED
     Dates: start: 20100604, end: 20100606
  2. TOPROL-XL [Concomitant]
     Indication: HYPERTENSION
     Dosage: DAILY
  3. BENECAR [Concomitant]
     Indication: HYPERTENSION
  4. LEVOXYL [Concomitant]
     Indication: HYPOTHYROIDISM
  5. OMEPRAZOLE [Concomitant]
     Indication: GASTROOESOPHAGEAL REFLUX DISEASE
  6. NITROFURANTOIN [Concomitant]
     Indication: CYSTITIS
  7. NITROFURANTOIN [Concomitant]
     Indication: PROPHYLAXIS
  8. SPIRIVA [Concomitant]
     Indication: ASTHMA
  9. VENTOLIN [Concomitant]
     Indication: ASTHMA
  10. SYMBICORT [Concomitant]
     Indication: ASTHMA
  11. VITAMINS [Concomitant]
     Indication: VITAMIN SUPPLEMENTATION
  12. OXYBUTYNIN ER [Concomitant]
     Indication: HYPERTONIC BLADDER
     Dates: start: 20100101
  13. PHENERGAN [Concomitant]
     Indication: NAUSEA
  14. UNKNOWN MEDICATION [Concomitant]
     Indication: NAUSEA
     Route: 060
     Dates: start: 20100606, end: 20100606

REACTIONS (4)
  - ERYTHEMA [None]
  - FLUSHING [None]
  - NAUSEA [None]
  - PRURITUS [None]
